FAERS Safety Report 12074631 (Version 1)
Quarter: 2016Q1

REPORT INFORMATION
  Report Type: Spontaneous
  Country: JP (occurrence: JP)
  Receive Date: 20160212
  Receipt Date: 20160212
  Transmission Date: 20160526
  Serious: Yes (Other)
  Sender: FDA-Public Use
  Company Number: JP-BAYER-2016-022534

PATIENT
  Age: 25 Year
  Sex: Female

DRUGS (1)
  1. ACETYLSALICYLIC ACID({=100 MG) [Suspect]
     Active Substance: ASPIRIN
     Dosage: UNK
     Route: 048

REACTIONS (6)
  - Hypoxia [None]
  - Maternal exposure during pregnancy [None]
  - Tachycardia [None]
  - Postpartum haemorrhage [None]
  - Deep vein thrombosis [None]
  - Threatened labour [Recovered/Resolved]
